FAERS Safety Report 9651190 (Version 1)
Quarter: 2013Q4

REPORT INFORMATION
  Report Type: Spontaneous
  Country: US (occurrence: US)
  Receive Date: 20131029
  Receipt Date: 20131029
  Transmission Date: 20140711
  Serious: No
  Sender: FDA-Public Use
  Company Number: US-PFIZER INC-2013307561

PATIENT
  Age: 56 Year
  Sex: Female
  Weight: 76.6 kg

DRUGS (8)
  1. CHANTIX [Suspect]
     Indication: SMOKING CESSATION THERAPY
     Dosage: 0.5 MG, 1X/DAY
     Route: 048
     Dates: start: 20131021, end: 201310
  2. CHANTIX [Suspect]
     Dosage: 0.5 MG, 2X/DAY
     Route: 048
     Dates: start: 201310, end: 201310
  3. CHANTIX [Suspect]
     Dosage: 1 MG, UNK
     Route: 048
     Dates: start: 201310
  4. WELLBUTRIN [Suspect]
     Dosage: UNK
  5. AMLODIPINE [Concomitant]
     Indication: HYPERTENSION
     Dosage: UNK
  6. BENAZEPRIL [Concomitant]
     Indication: HYPERTENSION
     Dosage: 10 MG, UNK
  7. ZOLOFT [Concomitant]
     Dosage: 100 MG, UNK
  8. RETIN A [Concomitant]
     Dosage: UNK

REACTIONS (1)
  - Blood pressure increased [Recovered/Resolved]
